FAERS Safety Report 10393975 (Version 9)
Quarter: 2015Q2

REPORT INFORMATION
  Report Type: Spontaneous
  Country: AR (occurrence: AR)
  Receive Date: 20140819
  Receipt Date: 20150403
  Transmission Date: 20150821
  Serious: Yes (Hospitalization, Other)
  Sender: FDA-Public Use
  Company Number: AR-PFIZER INC-2014228023

PATIENT
  Age: 63 Year
  Sex: Male

DRUGS (1)
  1. SUTENT [Suspect]
     Active Substance: SUNITINIB MALATE
     Indication: METASTATIC RENAL CELL CARCINOMA
     Dosage: 50 MG, DAILY, SCHEME 2/1
     Dates: start: 20140127, end: 20140609

REACTIONS (24)
  - Decreased immune responsiveness [Unknown]
  - Haemorrhage [Recovered/Resolved]
  - Renal disorder [Recovering/Resolving]
  - Cardiac valve disease [Not Recovered/Not Resolved]
  - Cardiac murmur [Not Recovered/Not Resolved]
  - Weight decreased [Recovered/Resolved]
  - Nosocomial infection [Recovered/Resolved]
  - Asthenia [Recovered/Resolved]
  - Haemorrhage urinary tract [Not Recovered/Not Resolved]
  - Metastatic renal cell carcinoma [Unknown]
  - Bacterial infection [Recovered/Resolved]
  - Embolism arterial [Not Recovered/Not Resolved]
  - Anaemia [Not Recovered/Not Resolved]
  - Gallbladder disorder [Recovered/Resolved]
  - Myocarditis bacterial [Recovered/Resolved]
  - Blood urine present [Recovering/Resolving]
  - Renal haemorrhage [Recovering/Resolving]
  - Bladder obstruction [Recovered/Resolved]
  - Bladder disorder [Recovering/Resolving]
  - Cardiac failure [Not Recovered/Not Resolved]
  - Myocardial infarction [Recovered/Resolved]
  - Urethral perforation [Recovered/Resolved]
  - Disease progression [Unknown]
  - Yellow skin [Recovered/Resolved]

NARRATIVE: CASE EVENT DATE: 2014
